FAERS Safety Report 25067229 (Version 2)
Quarter: 2025Q2

REPORT INFORMATION
  Report Type: Report from Study
  Country: US (occurrence: US)
  Receive Date: 20250312
  Receipt Date: 20250414
  Transmission Date: 20250717
  Serious: Yes (Hospitalization)
  Sender: ABBVIE
  Company Number: US-ABBVIE-6171876

PATIENT
  Sex: Female

DRUGS (2)
  1. RINVOQ [Suspect]
     Active Substance: UPADACITINIB
     Indication: Rheumatoid arthritis
     Dosage: STRENGTH: 15MG
     Route: 048
     Dates: start: 20241101, end: 20250216
  2. RINVOQ [Suspect]
     Active Substance: UPADACITINIB
     Indication: Rheumatoid arthritis
     Dosage: STRENGTH: 15MG
     Route: 048
     Dates: start: 20250318

REACTIONS (7)
  - Spinal osteoarthritis [Unknown]
  - Muscular weakness [Recovering/Resolving]
  - Hypoaesthesia [Unknown]
  - Pain in extremity [Recovering/Resolving]
  - Musculoskeletal stiffness [Unknown]
  - Grip strength decreased [Unknown]
  - Loss of personal independence in daily activities [Unknown]
